FAERS Safety Report 5333983-6 (Version None)
Quarter: 2007Q2

REPORT INFORMATION
  Report Type: 
  Country: None (occurrence: None)
  Receive Date: 20070524
  Receipt Date: 20070515
  Transmission Date: 20071010
  Serious: Yes (Other)
  Sender: FDA-Public Use
  Company Number: US-PFIZER INC-2007019387

PATIENT
  Sex: Female
  Weight: 68 kg

DRUGS (4)
  1. ACCUPRIL [Suspect]
     Indication: HYPERTENSION
     Route: 048
  2. ACCUPRIL [Suspect]
     Indication: DIABETES MELLITUS NON-INSULIN-DEPENDENT
  3. GLUCOTROL XL [Concomitant]
     Dosage: DAILY DOSE:10MG-FREQ:QD
     Route: 048
  4. LIPITOR [Concomitant]
     Dosage: DAILY DOSE:20MG-FREQ:QD
     Route: 048

REACTIONS (9)
  - ANAEMIA [None]
  - BACTERIA URINE [None]
  - BLOOD GLUCOSE ABNORMAL [None]
  - CELLS IN URINE [None]
  - CONDITION AGGRAVATED [None]
  - HAEMOGLOBIN URINE PRESENT [None]
  - MEDICATION RESIDUE [None]
  - RENAL IMPAIRMENT [None]
  - URINE LEUKOCYTE ESTERASE POSITIVE [None]
